FAERS Safety Report 26076239 (Version 1)
Quarter: 2025Q4

REPORT INFORMATION
  Report Type: Spontaneous
  Country: US (occurrence: US)
  Receive Date: 20251121
  Receipt Date: 20251121
  Transmission Date: 20260119
  Serious: No
  Sender: ROCHE
  Company Number: US-ROCHE-10000438954

PATIENT
  Age: 52 Year
  Sex: Male
  Weight: 61.23 kg

DRUGS (5)
  1. XOLAIR [Suspect]
     Active Substance: OMALIZUMAB
     Indication: Asthma
     Dosage: XOLAIR 325MG IN THE FORM OF (1) 150MG AND (1) 75MG PFS
     Route: 058
  2. XOLAIR [Suspect]
     Active Substance: OMALIZUMAB
     Indication: Hypersensitivity
     Dosage: XOLAIR 325MG IN THE FORM OF (1) 150MG AND (1) 75 MG PFS
     Route: 058
  3. XOLAIR [Suspect]
     Active Substance: OMALIZUMAB
     Indication: Chronic obstructive pulmonary disease
  4. PREDNISONE [Concomitant]
     Active Substance: PREDNISONE
     Dosage: 20 TABLETS
  5. TRELEGY ELLIPTA [Concomitant]
     Active Substance: FLUTICASONE FUROATE\UMECLIDINIUM BROMIDE\VILANTEROL TRIFENATATE
     Indication: Asthma
     Route: 055

REACTIONS (3)
  - Product dose omission issue [Unknown]
  - Product leakage [Unknown]
  - No adverse event [Unknown]

NARRATIVE: CASE EVENT DATE: 20251109
